FAERS Safety Report 22047508 (Version 1)
Quarter: 2023Q1

REPORT INFORMATION
  Report Type: Spontaneous
  Country: US (occurrence: US)
  Receive Date: 20230301
  Receipt Date: 20230301
  Transmission Date: 20230418
  Serious: No
  Sender: FDA-Public Use
  Company Number: US-KVK-TECH, INC-20221100092

PATIENT
  Age: 40 Year
  Sex: Female

DRUGS (8)
  1. CYCLOBENZAPRINE HYDROCHLORIDE [Suspect]
     Active Substance: CYCLOBENZAPRINE HYDROCHLORIDE
     Indication: Product used for unknown indication
     Route: 065
  2. OXYCODONE HYDROCHLORIDE [Suspect]
     Active Substance: OXYCODONE HYDROCHLORIDE
     Indication: Pain
  3. BUPRENORPHINE [Suspect]
     Active Substance: BUPRENORPHINE
  4. ACETAMINOPHEN [Suspect]
     Active Substance: ACETAMINOPHEN
  5. MELOXICAM [Suspect]
     Active Substance: MELOXICAM
  6. GABAPENTIN [Suspect]
     Active Substance: GABAPENTIN
  7. DICLOFENAC [Suspect]
     Active Substance: DICLOFENAC
     Route: 061
  8. HYDROMORPHONE [Suspect]
     Active Substance: HYDROMORPHONE
     Dosage: 8 MILLIGRAM, EVERY 8 HOURS

REACTIONS (1)
  - Treatment failure [Unknown]
